FAERS Safety Report 22220559 (Version 1)
Quarter: 2023Q2

REPORT INFORMATION
  Report Type: Spontaneous
  Country: US (occurrence: US)
  Receive Date: 20230417
  Receipt Date: 20230417
  Transmission Date: 20230721
  Serious: Yes (Other)
  Sender: FDA-Public Use
  Company Number: US-JNJFOC-20230427883

PATIENT
  Age: 43 Year
  Sex: Male

DRUGS (1)
  1. INVOKAMET [Suspect]
     Active Substance: CANAGLIFLOZIN\METFORMIN HYDROCHLORIDE
     Indication: Product used for unknown indication
     Dosage: 150-1000 MG
     Route: 048

REACTIONS (5)
  - Osteoarthritis [Unknown]
  - Neuritis [Unknown]
  - Neuroma [Unknown]
  - Foot deformity [Unknown]
  - Foot amputation [Unknown]

NARRATIVE: CASE EVENT DATE: 20140110
